FAERS Safety Report 24670339 (Version 1)
Quarter: 2024Q4

REPORT INFORMATION
  Report Type: Spontaneous
  Country: GB (occurrence: GB)
  Receive Date: 20241127
  Receipt Date: 20241127
  Transmission Date: 20250114
  Serious: Yes (Hospitalization, Other)
  Sender: TEVA
  Company Number: None

PATIENT
  Age: 52 Year
  Sex: Male

DRUGS (8)
  1. TESTOSTERONE [Suspect]
     Active Substance: TESTOSTERONE
     Indication: Product used for unknown indication
     Route: 065
  2. DOXAZOSIN [Concomitant]
     Active Substance: DOXAZOSIN\DOXAZOSIN MESYLATE
     Indication: Product used for unknown indication
     Route: 065
  3. FLUOXETINE [Concomitant]
     Active Substance: FLUOXETINE HYDROCHLORIDE
     Indication: Product used for unknown indication
     Dosage: ONE TO BE TAKEN EACH DAY,  20 MG CAPSULES, DAILY DOSE: 20 MG DAILY
     Route: 065
  4. OMEPRAZOLE [Concomitant]
     Active Substance: OMEPRAZOLE
     Indication: Product used for unknown indication
     Dosage: ONE TO BE TAKEN EACH DAY WHILST USING NAPROXEN 28 CAPSULE- TOLD AT [REDACTED] NOT TO TAKE- TREATM...
     Route: 065
  5. Sando-K [Concomitant]
     Indication: Product used for unknown indication
     Dosage: TAKE THREE TABLETS THREE TIMES A DAY AS PER ENDOCRINE- DRUG HISTORY DONE AT [REDACTED] STATES PAT...
     Route: 065
  6. NAPROXEN [Concomitant]
     Active Substance: NAPROXEN
     Indication: Product used for unknown indication
     Dosage: ONE TO BE TAKEN TWICE A DAY  - TOLD AT [REDACTED]NOT TO TAKE?56 TABLET, 500 MG TABLETS
     Route: 065
  7. NIFEDIPINE [Concomitant]
     Active Substance: NIFEDIPINE
     Indication: Product used for unknown indication
     Dosage: ONE CAPSULE TO BE TAKEN EVERY 12 HOURS, 20 MG MODIFIED-RELEASE CAPSULES
     Route: 065
  8. CALCIUM\CHOLECALCIFEROL [Concomitant]
     Active Substance: CALCIUM\CHOLECALCIFEROL
     Indication: Product used for unknown indication
     Dosage: ONE TO BE TAKEN TWICE A DAY, CHEWABLE TABLETS (DE PHARMACEUTICALS)
     Route: 065

REACTIONS (2)
  - Thrombosis [Unknown]
  - Polycythaemia [Unknown]
